FAERS Safety Report 19896304 (Version 1)
Quarter: 2021Q3

REPORT INFORMATION
  Report Type: Spontaneous
  Country: US (occurrence: US)
  Receive Date: 20210929
  Receipt Date: 20210929
  Transmission Date: 20211014
  Serious: No
  Sender: FDA-Public Use
  Company Number: US-PFIZER INC-2021661046

PATIENT
  Age: 4 Year
  Sex: Female
  Weight: 20 kg

DRUGS (4)
  1. PROPOFOL. [Suspect]
     Active Substance: PROPOFOL
     Indication: GENERAL ANAESTHESIA
     Dosage: 120 MG
     Dates: start: 20210528, end: 20210528
  2. DEMEROL APAP [Concomitant]
     Active Substance: ACETAMINOPHEN\MEPERIDINE HYDROCHLORIDE
     Dosage: 25 MG
     Dates: start: 20210528
  3. VERSED [Concomitant]
     Active Substance: MIDAZOLAM HYDROCHLORIDE
     Dosage: 2 MG
     Dates: start: 20210528
  4. CLONIDINE DCI [Concomitant]
     Dosage: 15 UG
     Dates: start: 20210528

REACTIONS (2)
  - Drug ineffective [Recovered/Resolved]
  - Product temperature excursion issue [Unknown]

NARRATIVE: CASE EVENT DATE: 20210528
